FAERS Safety Report 6933766-7 (Version None)
Quarter: 2010Q3

REPORT INFORMATION
  Report Type: 
  Country: None (occurrence: None)
  Receive Date: 20100817
  Receipt Date: 20100809
  Transmission Date: 20110219
  Serious: Yes (Hospitalization)
  Sender: FDA-Public Use
  Company Number: 2010SP040507

PATIENT
  Age: 20 Year
  Sex: Female
  Weight: 84.8226 kg

DRUGS (3)
  1. IMPLANON [Suspect]
     Indication: CONTRACEPTION
     Dosage: 1 DF; SUBD
     Dates: start: 20100201
  2. ALBUTEROL (CON.) [Concomitant]
  3. VITAMINS (CON.) [Concomitant]

REACTIONS (5)
  - HOT FLUSH [None]
  - LEGAL PROBLEM [None]
  - LOSS OF CONSCIOUSNESS [None]
  - MOOD SWINGS [None]
  - VIRAL INFECTION [None]
